FAERS Safety Report 12875290 (Version 1)
Quarter: 2016Q4

REPORT INFORMATION
  Report Type: Spontaneous
  Country: DE (occurrence: DE)
  Receive Date: 20161024
  Receipt Date: 20161024
  Transmission Date: 20170207
  Serious: Yes (Other)
  Sender: FDA-Public Use
  Company Number: DE-UCBSA-2016040245

PATIENT
  Sex: Male

DRUGS (2)
  1. KEPPRA [Suspect]
     Active Substance: LEVETIRACETAM
     Indication: STATUS EPILEPTICUS
     Dosage: 1500 MG, 2X/DAY (BID)
  2. KEPPRA [Suspect]
     Active Substance: LEVETIRACETAM
     Indication: OFF LABEL USE

REACTIONS (2)
  - Status epilepticus [Unknown]
  - Off label use [Unknown]
